FAERS Safety Report 9889611 (Version 1)
Quarter: 2014Q1

REPORT INFORMATION
  Report Type: Spontaneous
  Country: US (occurrence: US)
  Receive Date: 20140211
  Receipt Date: 20140211
  Transmission Date: 20141002
  Serious: Yes (Hospitalization, Other)
  Sender: FDA-Public Use
  Company Number: US-CELGENEUS-163-21880-14020636

PATIENT
  Age: 85 Year
  Sex: Female

DRUGS (10)
  1. REVLIMID [Suspect]
     Indication: PLASMA CELL MYELOMA
     Dosage: 10 MILLIGRAM
     Route: 048
     Dates: start: 20121224
  2. THALOMID [Suspect]
     Indication: PLASMA CELL MYELOMA
     Dosage: NOT PROVIDED
     Route: 048
     Dates: start: 201109
  3. NEULASTA [Concomitant]
     Indication: MUSCULOSKELETAL PAIN
     Route: 058
  4. DEXAMETHASONE [Concomitant]
     Indication: PLASMA CELL MYELOMA
     Route: 065
  5. CYANOCOBALAMIN [Concomitant]
     Indication: PRODUCT USED FOR UNKNOWN INDICATION
     Dosage: 100 MCG/ML
     Route: 030
     Dates: start: 20131002
  6. GLYBURIDE [Concomitant]
     Indication: PRODUCT USED FOR UNKNOWN INDICATION
     Dosage: 5 MILLIGRAM
     Route: 048
     Dates: start: 20131002
  7. LIPITOR [Concomitant]
     Indication: PRODUCT USED FOR UNKNOWN INDICATION
     Dosage: 40 MILLIGRAM
     Route: 048
     Dates: start: 20101230
  8. NIFEREX-150 FORTE [Concomitant]
     Indication: PRODUCT USED FOR UNKNOWN INDICATION
     Dosage: 150 MG-25 MCG-1 MG
     Route: 048
     Dates: start: 20110411
  9. POTASSIUM CHLORIDE [Concomitant]
     Indication: PRODUCT USED FOR UNKNOWN INDICATION
     Dosage: 120 MILLIEQUIVALENTS
     Route: 048
     Dates: start: 20130520
  10. ROCALTROL [Concomitant]
     Indication: PRODUCT USED FOR UNKNOWN INDICATION
     Dosage: .25 MICROGRAM
     Route: 048
     Dates: start: 20130821

REACTIONS (3)
  - Large granular lymphocytosis [Recovering/Resolving]
  - Staphylococcal bacteraemia [Unknown]
  - Escherichia urinary tract infection [Unknown]
